FAERS Safety Report 10085434 (Version 2)
Quarter: 2014Q2

REPORT INFORMATION
  Report Type: Spontaneous
  Country: FR (occurrence: FR)
  Receive Date: 20140418
  Receipt Date: 20140519
  Transmission Date: 20141212
  Serious: Yes (Hospitalization)
  Sender: FDA-Public Use
  Company Number: FR-BIOGENIDEC-2014BI034076

PATIENT
  Age: 51 Year
  Sex: Male

DRUGS (4)
  1. AVONEX [Suspect]
     Indication: MULTIPLE SCLEROSIS
     Route: 030
     Dates: start: 2003, end: 20140331
  2. BREXIN [Concomitant]
     Route: 048
     Dates: end: 20140331
  3. PHLOROGLUCINOL [Concomitant]
  4. PARACETAMOL [Concomitant]

REACTIONS (1)
  - Pancreatitis acute [Recovered/Resolved]
